FAERS Safety Report 4340828-X (Version None)
Quarter: 2004Q2

REPORT INFORMATION
  Report Type: 
  Country: None (occurrence: None)
  Receive Date: 20040414
  Receipt Date: 20040121
  Transmission Date: 20050107
  Serious: Yes (Death, Hospitalization)
  Sender: FDA-Public Use
  Company Number: D01200400192

PATIENT
  Age: 77 Year
  Sex: Male

DRUGS (6)
  1. OXALIPLATIN - SOLUTION - 85 MG/M2 [Suspect]
     Dosage: 85 MG/M2 Q2W, INTRAVENOUS NOS; 2 HOURS
     Route: 042
     Dates: start: 20040115, end: 20040115
  2. FLUOROURACIL [Suspect]
     Dosage: 400 MG/M2 AS IV BOLUS THEN 600 MG/M2 AS 22 HOURS CONTINUOUS INFUSION D1-D2 Q2W, 2 HOURS
     Route: 040
     Dates: start: 20040115, end: 20040116
  3. SR57746 OR PLACEBO - CAPSULE - 1 MG [Suspect]
     Indication: PROPHYLAXIS
     Dosage: 1 MG QD, ORAL; 2 HIOURS
     Route: 048
     Dates: start: 20040115, end: 20040116
  4. LEUCOVORIN CALCIUM [Suspect]
     Dosage: 200 MG/M2 AS 2 HOURS INFUSION ON D1-D2 Q2W; 1 DAY
     Dates: start: 20040115, end: 20040116
  5. EFFERALGAN CODEINE (PARACETAMOL + CODEINE) [Concomitant]
  6. KETOPROFEN [Concomitant]

REACTIONS (6)
  - C-REACTIVE PROTEIN INCREASED [None]
  - COLORECTAL CANCER METASTATIC [None]
  - INTESTINAL OBSTRUCTION [None]
  - MALIGNANT NEOPLASM PROGRESSION [None]
  - NEUTROPHIL COUNT INCREASED [None]
  - WHITE BLOOD CELL COUNT INCREASED [None]
